FAERS Safety Report 16670005 (Version 1)
Quarter: 2019Q3

REPORT INFORMATION
  Report Type: Report from Study
  Country: NL (occurrence: NL)
  Receive Date: 20190805
  Receipt Date: 20190805
  Transmission Date: 20191004
  Serious: Yes (Life-Threatening, Hospitalization, Other)
  Sender: FDA-Public Use
  Company Number: NL-MYLANLABS-2019M1072550

PATIENT
  Sex: Female

DRUGS (2)
  1. REMIFENTANIL [Suspect]
     Active Substance: REMIFENTANIL
     Indication: ANALGESIC THERAPY
     Dosage: PATIENT-CONTROLLED ANALGESIC PUMP
     Route: 050
     Dates: start: 2013
  2. REMIFENTANIL [Suspect]
     Active Substance: REMIFENTANIL
     Dosage: ADMINISTERED IN THE BACKGROUND
     Route: 050
     Dates: start: 2013

REACTIONS (4)
  - Off label use [Recovered/Resolved]
  - Maternal exposure during pregnancy [Recovered/Resolved]
  - Oxygen saturation decreased [Recovered/Resolved]
  - Apnoea [Recovered/Resolved]

NARRATIVE: CASE EVENT DATE: 2013
